FAERS Safety Report 13077676 (Version 2)
Quarter: 2016Q4

REPORT INFORMATION
  Report Type: Report from Study
  Country: DE (occurrence: DE)
  Receive Date: 20161231
  Receipt Date: 20161231
  Transmission Date: 20170207
  Serious: Yes (Other)
  Sender: FDA-Public Use
  Company Number: DE-BIOGEN-2016BI00321292

PATIENT
  Age: 32 Year
  Sex: Female
  Weight: 51 kg

DRUGS (3)
  1. FOLIC ACID. [Concomitant]
     Active Substance: FOLIC ACID
     Indication: PREGNANCY
     Route: 048
     Dates: start: 20161001
  2. TECFIDERA [Suspect]
     Active Substance: DIMETHYL FUMARATE
     Indication: MULTIPLE SCLEROSIS
     Route: 048
     Dates: start: 201604
  3. VITAMIN B [Concomitant]
     Active Substance: VITAMIN B
     Indication: NAUSEA
     Route: 048
     Dates: start: 20161001

REACTIONS (2)
  - Abortion spontaneous [Recovered/Resolved]
  - Pregnancy [Recovered/Resolved]

NARRATIVE: CASE EVENT DATE: 20160825
